FAERS Safety Report 9178586 (Version 1)
Quarter: 2012Q4

REPORT INFORMATION
  Report Type: 
  Country: FR (occurrence: FR)
  Receive Date: 20121029
  Receipt Date: 20121029
  Transmission Date: 20130627
  Serious: Yes (Other)
  Sender: FDA-Public Use
  Company Number: FR-BAXTER-2012BAX020853

PATIENT
  Sex: Female

DRUGS (9)
  1. ENDOXAN [Suspect]
     Indication: BREAST CANCER
     Route: 042
     Dates: start: 20120723, end: 20120723
  2. ENDOXAN [Suspect]
     Route: 042
     Dates: start: 20120820, end: 20120820
  3. ENDOXAN [Suspect]
     Route: 042
     Dates: start: 20120910, end: 20120910
  4. FLUOROURACIL [Suspect]
     Indication: BREAST CANCER
     Route: 042
     Dates: start: 20120723, end: 20120723
  5. FLUOROURACIL [Suspect]
     Route: 042
     Dates: start: 20120820, end: 20120820
  6. FLUOROURACIL [Suspect]
     Route: 042
     Dates: start: 20120910, end: 20120910
  7. FARMORUBICIN [Suspect]
     Indication: BREAST CANCER
     Route: 042
     Dates: start: 20120723, end: 20120723
  8. FARMORUBICIN [Suspect]
     Route: 042
     Dates: start: 20120820, end: 20120820
  9. FARMORUBICIN [Suspect]
     Route: 042
     Dates: start: 20120910, end: 20120910

REACTIONS (4)
  - Onycholysis [Recovering/Resolving]
  - Onychomadesis [Recovering/Resolving]
  - Nail bed infection [Recovering/Resolving]
  - Staphylococcal infection [None]
